FAERS Safety Report 4862093-7 (Version None)
Quarter: 2005Q4

REPORT INFORMATION
  Report Type: 
  Country: None (occurrence: None)
  Receive Date: 20051221
  Receipt Date: 20051128
  Transmission Date: 20060501
  Serious: Yes (Hospitalization)
  Sender: FDA-Public Use
  Company Number: NO-BOEHRINGER INGELHEIM PHARMACEUTICALS, INC.-2005-SW-00544NO

PATIENT
  Age: 66 Year
  Sex: Male

DRUGS (1)
  1. MOBIC [Suspect]
     Indication: ARTHRALGIA
     Dates: start: 20050816, end: 20050901

REACTIONS (1)
  - LUPUS-LIKE SYNDROME [None]
